FAERS Safety Report 10651039 (Version 2)
Quarter: 2015Q1

REPORT INFORMATION
  Report Type: Report from Study
  Country: US (occurrence: US)
  Receive Date: 20141215
  Receipt Date: 20150114
  Transmission Date: 20150720
  Serious: Yes (Hospitalization)
  Sender: FDA-Public Use
  Company Number: US-BIOGENIDEC-2014BI131626

PATIENT
  Age: 49 Year
  Sex: Female
  Weight: 89 kg

DRUGS (3)
  1. AVONEX [Suspect]
     Active Substance: INTERFERON BETA-1A
     Indication: MULTIPLE SCLEROSIS
     Route: 030
     Dates: start: 20120627
  2. VITAMIN D [Concomitant]
     Active Substance: CHOLECALCIFEROL
  3. DETROL LA [Concomitant]
     Active Substance: TOLTERODINE TARTRATE

REACTIONS (6)
  - Frustration [Unknown]
  - Muscle tightness [Recovered/Resolved]
  - Fatigue [Unknown]
  - Benign intracranial hypertension [Not Recovered/Not Resolved]
  - VIth nerve paralysis [Not Recovered/Not Resolved]
  - Migraine without aura [Recovered/Resolved]

NARRATIVE: CASE EVENT DATE: 201411
